FAERS Safety Report 8463101-7 (Version None)
Quarter: 2012Q2

REPORT INFORMATION
  Report Type: 
  Country: None (occurrence: None)
  Receive Date: 20120625
  Receipt Date: 20120614
  Transmission Date: 20120825
  Serious: Yes (Other)
  Sender: FDA-Public Use
  Company Number: JP-SANOFI-AVENTIS-2012SA044587

PATIENT
  Age: 85 Year
  Sex: Female

DRUGS (6)
  1. ZOLPIDEM [Suspect]
     Route: 048
     Dates: start: 20120507, end: 20120606
  2. ZOLPIDEM [Suspect]
     Route: 048
     Dates: start: 20120607, end: 20120609
  3. OLMESARTAN MEDOXOMIL [Suspect]
     Route: 048
     Dates: start: 20120507, end: 20120609
  4. ZOLPIDEM [Suspect]
     Indication: INSOMNIA
     Route: 048
     Dates: start: 20100101
  5. ROZEREM [Suspect]
     Route: 048
     Dates: start: 20120607, end: 20120609
  6. OLMESARTAN MEDOXOMIL [Suspect]
     Indication: HYPERTENSION
     Route: 048
     Dates: start: 20090101, end: 20120506

REACTIONS (1)
  - BLOOD CREATINE PHOSPHOKINASE INCREASED [None]
